FAERS Safety Report 24299830 (Version 9)
Quarter: 2025Q3

REPORT INFORMATION
  Report Type: Report from Study
  Country: US (occurrence: US)
  Receive Date: 20240909
  Receipt Date: 20250910
  Transmission Date: 20251020
  Serious: Yes (Hospitalization, Other)
  Sender: CSL BEHRING
  Company Number: US-BEH-2024178239

PATIENT
  Age: 68 Year
  Sex: Female
  Weight: 100.6 kg

DRUGS (33)
  1. ZEMAIRA [Suspect]
     Active Substance: .ALPHA.1-PROTEINASE INHIBITOR HUMAN
     Indication: Alpha-1 antitrypsin deficiency
     Route: 065
  2. ZEMAIRA [Suspect]
     Active Substance: .ALPHA.1-PROTEINASE INHIBITOR HUMAN
     Indication: Obesity
     Dosage: UNK UNK, QW
     Route: 042
  3. ZEMAIRA [Suspect]
     Active Substance: .ALPHA.1-PROTEINASE INHIBITOR HUMAN
     Dosage: 9768 MG
     Route: 042
  4. ALBUTEROL [Concomitant]
     Active Substance: ALBUTEROL
  5. FUROSEMIDE [Concomitant]
     Active Substance: FUROSEMIDE
  6. BUMETANIDE [Concomitant]
     Active Substance: BUMETANIDE
  7. CLOTRIMAZOLE [Concomitant]
     Active Substance: CLOTRIMAZOLE
  8. DEXAMETHASONE [Concomitant]
     Active Substance: DEXAMETHASONE
  9. ESTRACE [Concomitant]
     Active Substance: ESTRADIOL
  10. GLIMEPIRIDE [Concomitant]
     Active Substance: GLIMEPIRIDE
  11. HYDROCODONE [Concomitant]
     Active Substance: HYDROCODONE
  12. IPRATROPIUM [Concomitant]
     Active Substance: IPRATROPIUM
  13. IPRATROPIUM [Concomitant]
     Active Substance: IPRATROPIUM
  14. IPRATROPIUM [Concomitant]
     Active Substance: IPRATROPIUM
  15. LEVALBUTEROL [Concomitant]
     Active Substance: LEVALBUTEROL
  16. LOSARTAN POTASSIUM [Concomitant]
     Active Substance: LOSARTAN POTASSIUM
  17. PREGABALIN [Concomitant]
     Active Substance: PREGABALIN
  18. SALINE [Concomitant]
     Active Substance: SODIUM CHLORIDE
  19. TRELEGY ELLIPTA [Concomitant]
     Active Substance: FLUTICASONE FUROATE\UMECLIDINIUM BROMIDE\VILANTEROL TRIFENATATE
  20. VENLAFAXINE [Concomitant]
     Active Substance: VENLAFAXINE HYDROCHLORIDE
  21. PANTOPRAZOLE SODIUM [Concomitant]
     Active Substance: PANTOPRAZOLE SODIUM
  22. GABAPENTIN [Concomitant]
     Active Substance: GABAPENTIN
  23. CEFACLOR [Concomitant]
     Active Substance: CEFACLOR
  24. CIPROFLOXACIN HYDROCHLORIDE [Concomitant]
     Active Substance: CIPROFLOXACIN HYDROCHLORIDE
  25. ROPINIROLE [Concomitant]
     Active Substance: ROPINIROLE
  26. LEVOFLOXACIN [Concomitant]
     Active Substance: LEVOFLOXACIN
  27. ALBUTEROL SULFATE [Concomitant]
     Active Substance: ALBUTEROL SULFATE
  28. HYDROCHLOROTHIAZIDE [Concomitant]
     Active Substance: HYDROCHLOROTHIAZIDE
  29. TRAZODONE [Concomitant]
     Active Substance: TRAZODONE HYDROCHLORIDE
  30. AZITHROMYCIN [Concomitant]
     Active Substance: AZITHROMYCIN
  31. LEVALBUTEROL [Concomitant]
     Active Substance: LEVALBUTEROL
  32. FLUCONAZOLE [Concomitant]
     Active Substance: FLUCONAZOLE
  33. PREDNISONE [Concomitant]
     Active Substance: PREDNISONE

REACTIONS (13)
  - Respiratory tract infection [Unknown]
  - Lung disorder [Recovered/Resolved]
  - Kidney infection [Recovered/Resolved]
  - Corneal dystrophy [Recovered/Resolved]
  - Cataract [Recovered/Resolved]
  - Hepatic cirrhosis [Unknown]
  - Chest pain [Recovered/Resolved]
  - Back pain [Recovered/Resolved]
  - Nasopharyngitis [Recovering/Resolving]
  - Dyspnoea [Recovering/Resolving]
  - Cough [Recovering/Resolving]
  - Sputum discoloured [Recovering/Resolving]
  - Off label use [Unknown]

NARRATIVE: CASE EVENT DATE: 20240824
